FAERS Safety Report 6275554 (Version 10)
Quarter: 2016Q4

REPORT INFORMATION
  Report Type: Spontaneous
  Country: US (occurrence: US)
  Receive Date: 20070330
  Receipt Date: 20161128
  Transmission Date: 20170207
  Serious: Yes (Life-Threatening, Hospitalization, Other)
  Sender: FDA-Public Use
  Company Number: US-JNJFOC-20070304300

PATIENT
  Age: 58 Year
  Sex: Male
  Weight: 71.67 kg

DRUGS (3)
  1. ENBREL [Suspect]
     Active Substance: ETANERCEPT
     Indication: RHEUMATOID ARTHRITIS
     Dates: start: 200301, end: 200311
  2. REMICADE [Suspect]
     Active Substance: INFLIXIMAB
     Indication: RHEUMATOID ARTHRITIS
     Route: 042
     Dates: start: 2001, end: 2003
  3. HUMIRA [Suspect]
     Active Substance: ADALIMUMAB
     Indication: RHEUMATOID ARTHRITIS
     Dates: start: 200311, end: 200412

REACTIONS (5)
  - Nail discolouration [Unknown]
  - Infection [Unknown]
  - Onychomadesis [Unknown]
  - Rash [Unknown]
  - Mantle cell lymphoma [Not Recovered/Not Resolved]

NARRATIVE: CASE EVENT DATE: 2002
